FAERS Safety Report 5274573-3 (Version None)
Quarter: 2007Q1

REPORT INFORMATION
  Report Type: 
  Country: None (occurrence: None)
  Receive Date: 20070323
  Receipt Date: 20070314
  Transmission Date: 20070707
  Serious: Yes (Other)
  Sender: FDA-Public Use
  Company Number: US-PFIZER INC-2007020799

PATIENT
  Sex: Male

DRUGS (2)
  1. CHANTIX [Suspect]
  2. VALSARTAN [Concomitant]

REACTIONS (3)
  - FATIGUE [None]
  - HEPATIC ENZYME INCREASED [None]
  - PNEUMONIA [None]
